FAERS Safety Report 19584606 (Version 2)
Quarter: 2021Q3

REPORT INFORMATION
  Report Type: Spontaneous
  Country: US (occurrence: US)
  Receive Date: 20210720
  Receipt Date: 20210816
  Transmission Date: 20211014
  Serious: Yes (Hospitalization)
  Sender: FDA-Public Use
  Company Number: US-ALKERMES INC.-ALK-2021-003624

PATIENT
  Age: 28 Year
  Sex: Male
  Weight: 68.03 kg

DRUGS (3)
  1. ARISTADA [Suspect]
     Active Substance: ARIPIPRAZOLE LAUROXIL
     Indication: BIPOLAR DISORDER
     Dosage: 1064 MILLIGRAM, Q2MO
     Route: 030
     Dates: start: 2021
  2. ARISTADA [Suspect]
     Active Substance: ARIPIPRAZOLE LAUROXIL
     Dosage: 1064 MILLIGRAM, Q2MO
     Route: 030
     Dates: start: 20210610, end: 20210610
  3. MARIJUANA [Concomitant]
     Active Substance: CANNABIS SATIVA SUBSP. INDICA TOP
     Indication: BIPOLAR DISORDER
     Dosage: UNK
     Route: 065

REACTIONS (17)
  - Morbid thoughts [Not Recovered/Not Resolved]
  - Lethargy [Not Recovered/Not Resolved]
  - Weight decreased [Not Recovered/Not Resolved]
  - Suicide attempt [Not Recovered/Not Resolved]
  - Feeling abnormal [Not Recovered/Not Resolved]
  - Incorrect dose administered [Recovered/Resolved]
  - Loss of personal independence in daily activities [Not Recovered/Not Resolved]
  - Bradycardia [Not Recovered/Not Resolved]
  - Malaise [Not Recovered/Not Resolved]
  - Product administered at inappropriate site [Recovered/Resolved]
  - Slow speech [Not Recovered/Not Resolved]
  - Sleep disorder [Not Recovered/Not Resolved]
  - Depression [Not Recovered/Not Resolved]
  - Decreased appetite [Not Recovered/Not Resolved]
  - Injection site pain [Recovered/Resolved]
  - Dehydration [Not Recovered/Not Resolved]
  - Off label use [Recovered/Resolved]

NARRATIVE: CASE EVENT DATE: 2021
